FAERS Safety Report 21205230 (Version 1)
Quarter: 2022Q3

REPORT INFORMATION
  Report Type: Report from Study
  Country: GR (occurrence: GR)
  Receive Date: 20220812
  Receipt Date: 20220812
  Transmission Date: 20221026
  Serious: Yes (Hospitalization, Other)
  Sender: FDA-Public Use
  Company Number: GR-Nexus Pharma-000087

PATIENT
  Age: 62 Year
  Sex: Male

DRUGS (4)
  1. COLISTIMETHATE SODIUM [Suspect]
     Active Substance: COLISTIMETHATE SODIUM
     Indication: Pneumonia
     Dosage: 9 MILLION IU LOADING DOSE FOLLOWED AFTER 12 H BY MAINTENANCE DOSE OF 4.5 MILLION IU EVERY 12 HOURS
     Route: 042
  2. VANCOMYCIN [Suspect]
     Active Substance: VANCOMYCIN
     Indication: Pneumonia
  3. TIGECYCLINE [Suspect]
     Active Substance: TIGECYCLINE
     Indication: Pneumonia
     Dosage: LOADING DOSE FOLLOWED AFTER 12 H BY 100 MG EVERY 12 HOURS
     Route: 042
  4. AMPICILLIN SODIUM\SULBACTAM SODIUM [Suspect]
     Active Substance: AMPICILLIN SODIUM\SULBACTAM SODIUM
     Indication: Pneumonia
     Dosage: HIGH DOSE: 9 G (6+3) EVERY 8 HOURS

REACTIONS (1)
  - Acute kidney injury [Not Recovered/Not Resolved]
